FAERS Safety Report 8543751-X (Version None)
Quarter: 2012Q2

REPORT INFORMATION
  Report Type: 
  Country: None (occurrence: None)
  Receive Date: 20120416
  Receipt Date: 20091112
  Transmission Date: 20120825
  Serious: Yes (Hospitalization)
  Sender: FDA-Public Use
  Company Number: PHEH2009US15889

PATIENT
  Age: 87 Year
  Sex: Female

DRUGS (3)
  1. EXELON [Suspect]
     Dosage: TRANSDERMAL
     Route: 062
     Dates: start: 20090912
  2. NAMENDA [Concomitant]
  3. LEXAPRO [Concomitant]

REACTIONS (2)
  - PULMONARY EMBOLISM [None]
  - DYSPNOEA [None]
